FAERS Safety Report 19901240 (Version 2)
Quarter: 2022Q1

REPORT INFORMATION
  Report Type: Spontaneous
  Country: US (occurrence: US)
  Receive Date: 20210929
  Receipt Date: 20220103
  Transmission Date: 20220424
  Serious: Yes (Other)
  Sender: FDA-Public Use
  Company Number: US-GILEAD-2021-0549364

PATIENT
  Age: 31 Year
  Sex: Male

DRUGS (1)
  1. TRUVADA [Suspect]
     Active Substance: EMTRICITABINE\TENOFOVIR DISOPROXIL FUMARATE
     Indication: Prophylaxis against HIV infection
     Dosage: UNK
     Route: 048
     Dates: start: 20160201, end: 20170830

REACTIONS (7)
  - Osteoporosis [Not Recovered/Not Resolved]
  - Osteomalacia [Unknown]
  - Spinal compression fracture [Not Recovered/Not Resolved]
  - Jaw fracture [Recovered/Resolved]
  - Rib fracture [Not Recovered/Not Resolved]
  - Bone density decreased [Unknown]
  - Tooth demineralisation [Not Recovered/Not Resolved]

NARRATIVE: CASE EVENT DATE: 20170824
